FAERS Safety Report 13375421 (Version 1)
Quarter: 2017Q1

REPORT INFORMATION
  Report Type: Spontaneous
  Country: US (occurrence: US)
  Receive Date: 20170327
  Receipt Date: 20170327
  Transmission Date: 20170429
  Serious: Yes (Other)
  Sender: FDA-Public Use
  Company Number: US-BRISTOL-MYERS SQUIBB COMPANY-BMS-2017-024896

PATIENT
  Sex: Male

DRUGS (1)
  1. OPDIVO [Suspect]
     Active Substance: NIVOLUMAB
     Indication: RECTAL CANCER
     Dosage: 206.7 MG, UNK
     Route: 065
     Dates: start: 20170208, end: 20170222

REACTIONS (2)
  - Malignant neoplasm progression [Unknown]
  - Product use issue [Unknown]
